FAERS Safety Report 7680857-1 (Version None)
Quarter: 2011Q3

REPORT INFORMATION
  Report Type: 
  Country: None (occurrence: None)
  Receive Date: 20110812
  Receipt Date: 20110803
  Transmission Date: 20111222
  Serious: Yes (Hospitalization, Other)
  Sender: FDA-Public Use
  Company Number: US-MERCK-1104USA02223

PATIENT
  Age: 50 Year
  Sex: Female

DRUGS (5)
  1. ESTROGENS, CONJUGATED [Concomitant]
     Route: 065
     Dates: start: 19920101
  2. FOSAMAX [Suspect]
     Indication: OSTEOPOROSIS
     Route: 048
     Dates: start: 19970918, end: 20100101
  3. FOSAMAX [Suspect]
     Route: 048
     Dates: end: 20090101
  4. ONE-A-DAY ESSENTIAL VITAMINS [Concomitant]
     Route: 065
  5. FOSAMAX PLUS D [Suspect]
     Indication: OSTEOPOROSIS
     Route: 048

REACTIONS (28)
  - BACK PAIN [None]
  - DYSPEPSIA [None]
  - FRACTURE [None]
  - STRESS FRACTURE [None]
  - HYPERTENSION [None]
  - HYPERLIPIDAEMIA [None]
  - FOOT FRACTURE [None]
  - BARRETT'S OESOPHAGUS [None]
  - FALL [None]
  - BLOOD CHOLESTEROL INCREASED [None]
  - HYPERSENSITIVITY [None]
  - DIABETES MELLITUS [None]
  - HAEMORRHOIDS [None]
  - PAIN [None]
  - DRUG HYPERSENSITIVITY [None]
  - OSTEOARTHRITIS [None]
  - PAIN IN JAW [None]
  - FEMUR FRACTURE [None]
  - NECROSIS [None]
  - GASTROOESOPHAGEAL REFLUX DISEASE [None]
  - INTESTINAL MUCOSAL HYPERTROPHY [None]
  - GASTRITIS ATROPHIC [None]
  - DEPRESSION [None]
  - NEPHROLITHIASIS [None]
  - ANXIETY [None]
  - IMPAIRED HEALING [None]
  - HEART RATE INCREASED [None]
  - SLEEP DISORDER THERAPY [None]
